FAERS Safety Report 24767263 (Version 1)
Quarter: 2024Q4

REPORT INFORMATION
  Report Type: Spontaneous
  Country: DE (occurrence: DE)
  Receive Date: 20241223
  Receipt Date: 20241223
  Transmission Date: 20250114
  Serious: Yes (Hospitalization)
  Sender: ALEXION PHARMACEUTICALS
  Company Number: DE-002147023-NVSC2021DE244280

PATIENT
  Weight: 79 kg

DRUGS (4)
  1. FASLODEX [Suspect]
     Active Substance: FULVESTRANT
     Indication: Breast cancer metastatic
     Dosage: 500 MG, Q3W (DAILY DOSE)
  2. FASLODEX [Suspect]
     Active Substance: FULVESTRANT
  3. KISQALI [Suspect]
     Active Substance: RIBOCICLIB
     Indication: Breast cancer metastatic
     Dosage: 600 MG (DAILY DOSE) (SCHEMA 21 DAYS INTAKE, 7 DAYS PAUSE)
  4. AFINITOR [Concomitant]
     Active Substance: EVEROLIMUS
     Indication: Hormone receptor positive HER2 negative breast cancer
     Dosage: 2.5 MG, QD

REACTIONS (2)
  - Balance disorder [Recovered/Resolved]
  - Dizziness [Recovered/Resolved]
